FAERS Safety Report 18142433 (Version 1)
Quarter: 2020Q3

REPORT INFORMATION
  Report Type: Spontaneous
  Country: DE (occurrence: DE)
  Receive Date: 20200813
  Receipt Date: 20200813
  Transmission Date: 20201103
  Serious: Yes (Hospitalization)
  Sender: FDA-Public Use
  Company Number: DE-AUROBINDO-AUR-APL-2020-038783

PATIENT
  Age: 36 Year
  Sex: Male

DRUGS (1)
  1. ACICLOVIR TABLETS [Suspect]
     Active Substance: ACYCLOVIR
     Indication: PRODUCT USED FOR UNKNOWN INDICATION
     Dosage: 400 MILLIGRAM, FOUR TIMES/DAY
     Route: 048

REACTIONS (3)
  - Prescribed underdose [Unknown]
  - Rash [Unknown]
  - Eye pain [Unknown]
